FAERS Safety Report 4416044-X (Version None)
Quarter: 2004Q3

REPORT INFORMATION
  Report Type: 
  Country: None (occurrence: None)
  Receive Date: 20040804
  Receipt Date: 20040804
  Transmission Date: 20050211
  Serious: No
  Sender: FDA-Public Use
  Company Number: None

PATIENT
  Age: 54 Year
  Sex: Male
  Weight: 107.9561 kg

DRUGS (12)
  1. NEURONTIN [Suspect]
     Indication: DIABETIC NEUROPATHY
     Dosage: INITIALLY 100 MG PO TID, DOSE GRADUALLY INCREASED OVER TIME TO 900 MG PO TID
     Route: 048
     Dates: start: 20030401, end: 20040401
  2. HUMALOG [Concomitant]
  3. LANTUS [Concomitant]
  4. VENLAFAXINE HCL [Concomitant]
  5. KCL TAB [Concomitant]
  6. PANTOPRAZOLE [Concomitant]
  7. FUROSEMIDE [Concomitant]
  8. METOPROLOL TARTRATE [Concomitant]
  9. VALSARTAN XL [Concomitant]
  10. ATORVASTATIN [Concomitant]
  11. METFORMIN/GLYBURIDE [Concomitant]
  12. ROSIGLITAZONE MALEATE [Concomitant]

REACTIONS (9)
  - ABDOMINAL PAIN UPPER [None]
  - CHOLESTASIS [None]
  - CHROMATURIA [None]
  - HEPATIC FIBROSIS [None]
  - HEPATOTOXICITY [None]
  - INFLAMMATION [None]
  - JAUNDICE [None]
  - LIVER DISORDER [None]
  - LIVER FUNCTION TEST ABNORMAL [None]
